FAERS Safety Report 25009646 (Version 2)
Quarter: 2025Q3

REPORT INFORMATION
  Report Type: Spontaneous
  Country: CA (occurrence: CA)
  Receive Date: 20250225
  Receipt Date: 20250825
  Transmission Date: 20251021
  Serious: Yes (Death, Life-Threatening, Hospitalization, Disabling, Other)
  Sender: Haleon PLC
  Company Number: CA-HALEON-2229604

PATIENT
  Age: 43 Year
  Sex: Female
  Weight: 68 kg

DRUGS (199)
  1. VOLTAREN [Suspect]
     Active Substance: DICLOFENAC SODIUM
     Indication: Product used for unknown indication
  2. VOLTAREN [Suspect]
     Active Substance: DICLOFENAC SODIUM
  3. VOLTAREN [Suspect]
     Active Substance: DICLOFENAC SODIUM
  4. VOLTAREN [Suspect]
     Active Substance: DICLOFENAC SODIUM
  5. VOLTAREN [Suspect]
     Active Substance: DICLOFENAC SODIUM
  6. VOLTAREN [Suspect]
     Active Substance: DICLOFENAC SODIUM
     Route: 048
  7. VOLTAREN [Suspect]
     Active Substance: DICLOFENAC SODIUM
     Route: 003
  8. VOLTAREN [Suspect]
     Active Substance: DICLOFENAC SODIUM
  9. VOLTAREN [Suspect]
     Active Substance: DICLOFENAC SODIUM
  10. VOLTAREN [Suspect]
     Active Substance: DICLOFENAC SODIUM
  11. VOLTAREN [Suspect]
     Active Substance: DICLOFENAC SODIUM
  12. VOLTAREN [Suspect]
     Active Substance: DICLOFENAC SODIUM
     Route: 048
  13. VOLTAREN [Suspect]
     Active Substance: DICLOFENAC SODIUM
  14. VOLTAREN [Suspect]
     Active Substance: DICLOFENAC SODIUM
  15. VOLTAREN [Suspect]
     Active Substance: DICLOFENAC SODIUM
  16. VOLTAREN [Suspect]
     Active Substance: DICLOFENAC SODIUM
     Route: 048
  17. VOLTAREN [Suspect]
     Active Substance: DICLOFENAC SODIUM
  18. DICLOFENAC [Suspect]
     Active Substance: DICLOFENAC
     Indication: Product used for unknown indication
  19. DICLOFENAC [Suspect]
     Active Substance: DICLOFENAC
  20. DICLOFENAC [Suspect]
     Active Substance: DICLOFENAC
  21. DICLOFENAC [Suspect]
     Active Substance: DICLOFENAC
  22. DICLOFENAC [Suspect]
     Active Substance: DICLOFENAC
  23. DICLOFENAC [Suspect]
     Active Substance: DICLOFENAC
  24. DICLOFENAC [Suspect]
     Active Substance: DICLOFENAC
  25. VOLTAREN [Suspect]
     Active Substance: DICLOFENAC SODIUM
     Indication: Product used for unknown indication
     Route: 048
  26. VOLTAREN [Suspect]
     Active Substance: DICLOFENAC SODIUM
  27. VOLTAREN [Suspect]
     Active Substance: DICLOFENAC SODIUM
     Route: 003
  28. VOLTAREN [Suspect]
     Active Substance: DICLOFENAC SODIUM
  29. VOLTAREN [Suspect]
     Active Substance: DICLOFENAC SODIUM
  30. VOLTAREN [Suspect]
     Active Substance: DICLOFENAC SODIUM
  31. VOLTAREN [Suspect]
     Active Substance: DICLOFENAC SODIUM
  32. VOLTAREN [Suspect]
     Active Substance: DICLOFENAC SODIUM
     Route: 048
  33. VOLTAREN [Suspect]
     Active Substance: DICLOFENAC SODIUM
     Route: 003
  34. VOLTAREN [Suspect]
     Active Substance: DICLOFENAC SODIUM
  35. VOLTAREN [Suspect]
     Active Substance: DICLOFENAC SODIUM
  36. VOLTAREN [Suspect]
     Active Substance: DICLOFENAC SODIUM
  37. HUMAN IMMUNOGLOBULIN G [Suspect]
     Active Substance: HUMAN IMMUNOGLOBULIN G
     Indication: Product used for unknown indication
     Route: 058
  38. HUMAN IMMUNOGLOBULIN G [Suspect]
     Active Substance: HUMAN IMMUNOGLOBULIN G
     Route: 058
  39. HUMAN IMMUNOGLOBULIN G [Suspect]
     Active Substance: HUMAN IMMUNOGLOBULIN G
  40. HUMAN IMMUNOGLOBULIN G [Suspect]
     Active Substance: HUMAN IMMUNOGLOBULIN G
     Route: 058
  41. HUMAN IMMUNOGLOBULIN G [Suspect]
     Active Substance: HUMAN IMMUNOGLOBULIN G
     Route: 058
  42. HUMAN IMMUNOGLOBULIN G [Suspect]
     Active Substance: HUMAN IMMUNOGLOBULIN G
     Route: 048
  43. HUMAN IMMUNOGLOBULIN G [Suspect]
     Active Substance: HUMAN IMMUNOGLOBULIN G
     Route: 048
  44. HUMAN IMMUNOGLOBULIN G [Suspect]
     Active Substance: HUMAN IMMUNOGLOBULIN G
  45. HUMAN IMMUNOGLOBULIN G [Suspect]
     Active Substance: HUMAN IMMUNOGLOBULIN G
     Route: 058
  46. HUMAN IMMUNOGLOBULIN G [Suspect]
     Active Substance: HUMAN IMMUNOGLOBULIN G
     Route: 058
  47. HUMAN IMMUNOGLOBULIN G [Suspect]
     Active Substance: HUMAN IMMUNOGLOBULIN G
     Route: 058
  48. HUMAN IMMUNOGLOBULIN G [Suspect]
     Active Substance: HUMAN IMMUNOGLOBULIN G
  49. HUMAN IMMUNOGLOBULIN G [Suspect]
     Active Substance: HUMAN IMMUNOGLOBULIN G
     Route: 058
  50. HUMAN IMMUNOGLOBULIN G [Suspect]
     Active Substance: HUMAN IMMUNOGLOBULIN G
     Dosage: 40 MG, QW
     Route: 058
  51. HUMAN IMMUNOGLOBULIN G [Suspect]
     Active Substance: HUMAN IMMUNOGLOBULIN G
     Route: 048
  52. HUMAN IMMUNOGLOBULIN G [Suspect]
     Active Substance: HUMAN IMMUNOGLOBULIN G
     Route: 048
  53. HUMAN IMMUNOGLOBULIN G [Suspect]
     Active Substance: HUMAN IMMUNOGLOBULIN G
     Dosage: 40 MG, QW
     Route: 058
  54. HUMAN IMMUNOGLOBULIN G [Suspect]
     Active Substance: HUMAN IMMUNOGLOBULIN G
     Route: 058
  55. HUMAN IMMUNOGLOBULIN G [Suspect]
     Active Substance: HUMAN IMMUNOGLOBULIN G
  56. ALENDRONIC ACID [Suspect]
     Active Substance: ALENDRONIC ACID
     Indication: Rheumatoid arthritis
  57. ANAKINRA [Suspect]
     Active Substance: ANAKINRA
     Indication: Rheumatoid arthritis
     Route: 048
  58. ANAKINRA [Suspect]
     Active Substance: ANAKINRA
     Indication: Product used for unknown indication
  59. ANAKINRA [Suspect]
     Active Substance: ANAKINRA
  60. ANAKINRA [Suspect]
     Active Substance: ANAKINRA
  61. ANAKINRA [Suspect]
     Active Substance: ANAKINRA
  62. ANAKINRA [Suspect]
     Active Substance: ANAKINRA
  63. ANAKINRA [Suspect]
     Active Substance: ANAKINRA
  64. ANAKINRA [Suspect]
     Active Substance: ANAKINRA
     Route: 048
  65. ANAKINRA [Suspect]
     Active Substance: ANAKINRA
  66. ANAKINRA [Suspect]
     Active Substance: ANAKINRA
  67. ANAKINRA [Suspect]
     Active Substance: ANAKINRA
  68. ANAKINRA [Suspect]
     Active Substance: ANAKINRA
  69. ANAKINRA [Suspect]
     Active Substance: ANAKINRA
  70. ANAKINRA [Suspect]
     Active Substance: ANAKINRA
  71. LEFLUNOMIDE [Suspect]
     Active Substance: LEFLUNOMIDE
     Indication: Rheumatoid arthritis
     Dosage: 20 MG, QD
  72. LEFLUNOMIDE [Suspect]
     Active Substance: LEFLUNOMIDE
  73. LEFLUNOMIDE [Suspect]
     Active Substance: LEFLUNOMIDE
  74. LEFLUNOMIDE [Suspect]
     Active Substance: LEFLUNOMIDE
  75. LEFLUNOMIDE [Suspect]
     Active Substance: LEFLUNOMIDE
  76. LEFLUNOMIDE [Suspect]
     Active Substance: LEFLUNOMIDE
  77. CETIRIZINE [Suspect]
     Active Substance: CETIRIZINE HYDROCHLORIDE
     Indication: Product used for unknown indication
     Dosage: 20 MG, QD
  78. CETIRIZINE [Suspect]
     Active Substance: CETIRIZINE HYDROCHLORIDE
  79. CETIRIZINE [Suspect]
     Active Substance: CETIRIZINE HYDROCHLORIDE
     Route: 048
  80. CETIRIZINE [Suspect]
     Active Substance: CETIRIZINE HYDROCHLORIDE
     Route: 048
  81. CETIRIZINE [Suspect]
     Active Substance: CETIRIZINE HYDROCHLORIDE
     Dosage: 10 MG, QD
  82. CETIRIZINE [Suspect]
     Active Substance: CETIRIZINE HYDROCHLORIDE
     Dosage: 20 MG, QD
     Route: 048
  83. CETIRIZINE [Suspect]
     Active Substance: CETIRIZINE HYDROCHLORIDE
  84. CETIRIZINE HYDROCHLORIDE [Suspect]
     Active Substance: CETIRIZINE HYDROCHLORIDE
     Indication: Rheumatoid arthritis
     Route: 058
  85. CETIRIZINE HYDROCHLORIDE [Suspect]
     Active Substance: CETIRIZINE HYDROCHLORIDE
     Route: 058
  86. MYCOPHENOLATE MOFETIL [Suspect]
     Active Substance: MYCOPHENOLATE MOFETIL
     Indication: Product used for unknown indication
     Route: 048
  87. MYCOPHENOLATE MOFETIL [Suspect]
     Active Substance: MYCOPHENOLATE MOFETIL
     Indication: Psoriatic arthropathy
  88. CORTISONE [Suspect]
     Active Substance: CORTISONE
     Indication: Rheumatoid arthritis
     Route: 016
  89. COSENTYX [Suspect]
     Active Substance: SECUKINUMAB
     Indication: Psoriatic arthropathy
  90. COSENTYX [Suspect]
     Active Substance: SECUKINUMAB
  91. PREGABALIN [Suspect]
     Active Substance: PREGABALIN
     Indication: Product used for unknown indication
  92. PREGABALIN [Suspect]
     Active Substance: PREGABALIN
  93. DEXAMETHASONE [Suspect]
     Active Substance: DEXAMETHASONE
     Indication: Product used for unknown indication
  94. DEXAMETHASONE [Suspect]
     Active Substance: DEXAMETHASONE
     Route: 016
  95. DEXAMETHASONE [Suspect]
     Active Substance: DEXAMETHASONE
     Route: 048
  96. DEXAMETHASONE [Suspect]
     Active Substance: DEXAMETHASONE
     Dosage: SOLUTION
  97. DEXAMETHASONE [Suspect]
     Active Substance: DEXAMETHASONE
     Route: 048
  98. RITUXIMAB [Suspect]
     Active Substance: RITUXIMAB
     Indication: Rheumatoid arthritis
     Route: 048
  99. RITUXIMAB [Suspect]
     Active Substance: RITUXIMAB
     Route: 048
  100. RITUXIMAB [Suspect]
     Active Substance: RITUXIMAB
  101. RITUXIMAB [Suspect]
     Active Substance: RITUXIMAB
  102. ERELZI [Suspect]
     Active Substance: ETANERCEPT-SZZS
     Indication: Rheumatoid arthritis
     Route: 058
  103. ERELZI [Suspect]
     Active Substance: ETANERCEPT-SZZS
     Route: 058
  104. ERELZI [Suspect]
     Active Substance: ETANERCEPT-SZZS
  105. ERELZI [Suspect]
     Active Substance: ETANERCEPT-SZZS
  106. ERELZI [Suspect]
     Active Substance: ETANERCEPT-SZZS
  107. ERELZI [Suspect]
     Active Substance: ETANERCEPT-SZZS
  108. ERELZI [Suspect]
     Active Substance: ETANERCEPT-SZZS
  109. ERELZI [Suspect]
     Active Substance: ETANERCEPT-SZZS
  110. ERELZI [Suspect]
     Active Substance: ETANERCEPT-SZZS
     Route: 058
  111. FOLIC ACID [Suspect]
     Active Substance: FOLIC ACID
     Indication: Rheumatoid arthritis
     Route: 048
  112. FOLIC ACID [Suspect]
     Active Substance: FOLIC ACID
     Route: 048
  113. FOLIC ACID [Suspect]
     Active Substance: FOLIC ACID
  114. FOLIC ACID [Suspect]
     Active Substance: FOLIC ACID
  115. FOLIC ACID [Suspect]
     Active Substance: FOLIC ACID
  116. HYRIMOZ [Suspect]
     Active Substance: ADALIMUMAB-ADAZ
     Indication: Rheumatoid arthritis
  117. HYRIMOZ [Suspect]
     Active Substance: ADALIMUMAB-ADAZ
     Route: 058
  118. HYRIMOZ [Suspect]
     Active Substance: ADALIMUMAB-ADAZ
  119. HYRIMOZ [Suspect]
     Active Substance: ADALIMUMAB-ADAZ
     Route: 058
  120. HYRIMOZ [Suspect]
     Active Substance: ADALIMUMAB-ADAZ
     Route: 058
  121. HYRIMOZ [Suspect]
     Active Substance: ADALIMUMAB-ADAZ
     Route: 058
  122. CORTISONE [Suspect]
     Active Substance: CORTISONE
     Indication: Rheumatoid arthritis
     Route: 016
  123. LEVOCETIRIZINE HYDROCHLORIDE [Suspect]
     Active Substance: LEVOCETIRIZINE HYDROCHLORIDE
     Indication: Product used for unknown indication
     Route: 058
  124. LEVOCETIRIZINE HYDROCHLORIDE [Suspect]
     Active Substance: LEVOCETIRIZINE HYDROCHLORIDE
     Route: 042
  125. LEVOCETIRIZINE HYDROCHLORIDE [Suspect]
     Active Substance: LEVOCETIRIZINE HYDROCHLORIDE
     Route: 042
  126. LEVOCETIRIZINE HYDROCHLORIDE [Suspect]
     Active Substance: LEVOCETIRIZINE HYDROCHLORIDE
     Route: 042
  127. LEVOCETIRIZINE HYDROCHLORIDE [Suspect]
     Active Substance: LEVOCETIRIZINE HYDROCHLORIDE
     Route: 042
  128. LEVOCETIRIZINE HYDROCHLORIDE [Suspect]
     Active Substance: LEVOCETIRIZINE HYDROCHLORIDE
     Route: 042
  129. LEVOCETIRIZINE HYDROCHLORIDE [Suspect]
     Active Substance: LEVOCETIRIZINE HYDROCHLORIDE
  130. LEVOCETIRIZINE HYDROCHLORIDE [Suspect]
     Active Substance: LEVOCETIRIZINE HYDROCHLORIDE
     Route: 058
  131. LEVOCETIRIZINE HYDROCHLORIDE [Suspect]
     Active Substance: LEVOCETIRIZINE HYDROCHLORIDE
     Route: 058
  132. LEVOCETIRIZINE HYDROCHLORIDE [Suspect]
     Active Substance: LEVOCETIRIZINE HYDROCHLORIDE
  133. LEVOCETIRIZINE HYDROCHLORIDE [Suspect]
     Active Substance: LEVOCETIRIZINE HYDROCHLORIDE
     Route: 042
  134. LEVOCETIRIZINE HYDROCHLORIDE [Suspect]
     Active Substance: LEVOCETIRIZINE HYDROCHLORIDE
     Route: 058
  135. LYRICA [Suspect]
     Active Substance: PREGABALIN
     Indication: Product used for unknown indication
  136. LYRICA [Suspect]
     Active Substance: PREGABALIN
  137. LYRICA [Suspect]
     Active Substance: PREGABALIN
  138. LYRICA [Suspect]
     Active Substance: PREGABALIN
  139. METHOTREXATE [Suspect]
     Active Substance: METHOTREXATE
     Indication: Rheumatoid arthritis
     Dosage: 10 MG, Q24H
     Route: 048
  140. METHOTREXATE [Suspect]
     Active Substance: METHOTREXATE
     Route: 005
  141. METHOTREXATE [Suspect]
     Active Substance: METHOTREXATE
     Route: 058
  142. METHOTREXATE [Suspect]
     Active Substance: METHOTREXATE
  143. METHOTREXATE [Suspect]
     Active Substance: METHOTREXATE
     Route: 058
  144. METHOTREXATE [Suspect]
     Active Substance: METHOTREXATE
  145. METHOTREXATE [Suspect]
     Active Substance: METHOTREXATE
  146. METHOTREXATE [Suspect]
     Active Substance: METHOTREXATE
  147. METHOTREXATE [Suspect]
     Active Substance: METHOTREXATE
  148. METHOTREXATE [Suspect]
     Active Substance: METHOTREXATE
  149. METHOTREXATE [Suspect]
     Active Substance: METHOTREXATE
     Route: 058
  150. METHOTREXATE [Suspect]
     Active Substance: METHOTREXATE
  151. METHOTREXATE [Suspect]
     Active Substance: METHOTREXATE
     Dosage: 50 MG, QW
     Route: 058
  152. METHOTREXATE [Suspect]
     Active Substance: METHOTREXATE
  153. METHOTREXATE [Suspect]
     Active Substance: METHOTREXATE
     Route: 058
  154. METHOTREXATE [Suspect]
     Active Substance: METHOTREXATE
     Dosage: 50 MG, QW
     Route: 058
  155. METHOTREXATE [Suspect]
     Active Substance: METHOTREXATE
  156. METHOTREXATE [Suspect]
     Active Substance: METHOTREXATE
  157. METHOTREXATE [Suspect]
     Active Substance: METHOTREXATE
  158. METHOTREXATE [Suspect]
     Active Substance: METHOTREXATE
  159. OXYCODONE [Suspect]
     Active Substance: OXYCODONE
     Indication: Product used for unknown indication
     Dosage: 225 MG, QD
     Route: 048
  160. OXYCODONE [Suspect]
     Active Substance: OXYCODONE
  161. OXYCODONE [Suspect]
     Active Substance: OXYCODONE
     Dosage: 20 MG, QD
  162. OXYCODONE [Suspect]
     Active Substance: OXYCODONE
     Dosage: 25 MG, QD
  163. OXYCODONE [Suspect]
     Active Substance: OXYCODONE
     Dosage: 25 MG, QW
     Route: 013
  164. OXYCODONE [Suspect]
     Active Substance: OXYCODONE
     Dosage: 25 MG, QW
     Route: 058
  165. OXYCODONE [Suspect]
     Active Substance: OXYCODONE
     Dosage: 15 MG, QD
     Route: 048
  166. OXYCODONE [Suspect]
     Active Substance: OXYCODONE
     Dosage: 25 MG, QD
     Route: 048
  167. OXYCODONE [Suspect]
     Active Substance: OXYCODONE
     Dosage: 20 MG, QD
     Route: 048
  168. OXYCODONE [Suspect]
     Active Substance: OXYCODONE
     Dosage: 20 MG, QD
  169. OXYCODONE [Suspect]
     Active Substance: OXYCODONE
     Dosage: 20 MG, QD
  170. OXYCODONE [Suspect]
     Active Substance: OXYCODONE
     Dosage: 25 MG, QW
     Route: 058
  171. OXYCODONE [Suspect]
     Active Substance: OXYCODONE
  172. OXYCODONE [Suspect]
     Active Substance: OXYCODONE
     Route: 003
  173. OXYCODONE [Suspect]
     Active Substance: OXYCODONE
     Dosage: 20 MG, QD
     Route: 048
  174. OXYCODONE [Suspect]
     Active Substance: OXYCODONE
     Route: 003
  175. OXYCODONE [Suspect]
     Active Substance: OXYCODONE
     Route: 048
  176. OXYCODONE [Suspect]
     Active Substance: OXYCODONE
     Dosage: 25 MG, QD
     Route: 048
  177. DESOXIMETASONE [Suspect]
     Active Substance: DESOXIMETASONE
     Indication: Rheumatoid arthritis
     Route: 016
  178. LEFLUNOMIDE [Suspect]
     Active Substance: LEFLUNOMIDE
     Indication: Rheumatoid arthritis
     Route: 048
  179. LEFLUNOMIDE [Suspect]
     Active Substance: LEFLUNOMIDE
  180. LEFLUNOMIDE [Suspect]
     Active Substance: LEFLUNOMIDE
     Route: 048
  181. LEFLUNOMIDE [Suspect]
     Active Substance: LEFLUNOMIDE
  182. LEFLUNOMIDE [Suspect]
     Active Substance: LEFLUNOMIDE
     Route: 048
  183. LEFLUNOMIDE [Suspect]
     Active Substance: LEFLUNOMIDE
     Route: 048
  184. DICLOFENAC POTASSIUM [Suspect]
     Active Substance: DICLOFENAC POTASSIUM
     Indication: Product used for unknown indication
  185. MYCOPHENOLATE MOFETIL [Suspect]
     Active Substance: MYCOPHENOLATE MOFETIL
     Indication: Psoriatic arthropathy
  186. MYCOPHENOLATE MOFETIL [Suspect]
     Active Substance: MYCOPHENOLATE MOFETIL
     Indication: Product used for unknown indication
     Route: 048
  187. TRIAMCINOLONE [Suspect]
     Active Substance: TRIAMCINOLONE
     Indication: Rheumatoid arthritis
     Route: 048
  188. TRIAMCINOLONE [Suspect]
     Active Substance: TRIAMCINOLONE
  189. TRIAMCINOLONE [Suspect]
     Active Substance: TRIAMCINOLONE
  190. TRIAMCINOLONE [Suspect]
     Active Substance: TRIAMCINOLONE
     Route: 048
  191. VITAMIN D3 [Concomitant]
     Active Substance: CHOLECALCIFEROL
     Indication: Product used for unknown indication
  192. VITAMIN D3 [Concomitant]
     Active Substance: CHOLECALCIFEROL
  193. VITAMIN D3 [Concomitant]
     Active Substance: CHOLECALCIFEROL
  194. LEFLUNOMIDE [Suspect]
     Active Substance: LEFLUNOMIDE
     Indication: Rheumatoid arthritis
     Route: 048
  195. LEFLUNOMIDE [Suspect]
     Active Substance: LEFLUNOMIDE
     Route: 048
  196. LEFLUNOMIDE [Suspect]
     Active Substance: LEFLUNOMIDE
     Route: 048
  197. LEFLUNOMIDE [Suspect]
     Active Substance: LEFLUNOMIDE
     Route: 048
  198. LEFLUNOMIDE [Suspect]
     Active Substance: LEFLUNOMIDE
  199. LEFLUNOMIDE [Suspect]
     Active Substance: LEFLUNOMIDE

REACTIONS (16)
  - Adrenal insufficiency [Fatal]
  - Contraindicated product administered [Fatal]
  - Drug tolerance [Fatal]
  - Exposure during pregnancy [Fatal]
  - Hypokalaemia [Fatal]
  - Immunodeficiency [Fatal]
  - Intentional product use issue [Fatal]
  - Joint destruction [Fatal]
  - Loss of consciousness [Fatal]
  - Maternal exposure during pregnancy [Fatal]
  - Off label use [Fatal]
  - Polyarthritis [Fatal]
  - Pregnancy [Fatal]
  - Product use in unapproved indication [Fatal]
  - Therapeutic product effect decreased [Fatal]
  - Therapy non-responder [Fatal]
